FAERS Safety Report 14563672 (Version 5)
Quarter: 2021Q1

REPORT INFORMATION
  Report Type: Spontaneous
  Country: US (occurrence: US)
  Receive Date: 20180222
  Receipt Date: 20210322
  Transmission Date: 20210419
  Serious: Yes (Hospitalization)
  Sender: FDA-Public Use
  Company Number: US-VIFOR (INTERNATIONAL) INC.-VIT-2018-01103

PATIENT
  Age: 81 Year
  Sex: Female
  Weight: 68.1 kg

DRUGS (16)
  1. VELTASSA [Suspect]
     Active Substance: PATIROMER
     Route: 048
  2. VELTASSA [Suspect]
     Active Substance: PATIROMER
     Indication: HYPERKALAEMIA
     Route: 048
     Dates: start: 20160301
  3. PROPAFEONE HCL ER [Concomitant]
  4. AMARYL [Concomitant]
     Active Substance: GLIMEPIRIDE
  5. VELTASSA [Suspect]
     Active Substance: PATIROMER
     Dates: start: 201603
  6. OMEPRAZOLE. [Concomitant]
     Active Substance: OMEPRAZOLE
  7. VELTASSA [Suspect]
     Active Substance: PATIROMER
     Dosage: FOR THREE DAYS
     Route: 048
  8. PRADAXA [Concomitant]
     Active Substance: DABIGATRAN ETEXILATE MESYLATE
  9. METFORMIN HCL [Concomitant]
     Active Substance: METFORMIN HYDROCHLORIDE
  10. LIPITOR [Concomitant]
     Active Substance: ATORVASTATIN CALCIUM
  11. LEXAPRO [Concomitant]
     Active Substance: ESCITALOPRAM OXALATE
  12. TYLENOL [Concomitant]
     Active Substance: ACETAMINOPHEN
  13. SYNTHROID [Concomitant]
     Active Substance: LEVOTHYROXINE SODIUM
  14. METOPROLOL TARTRATE. [Concomitant]
     Active Substance: METOPROLOL TARTRATE
  15. ELLIQUIS [Concomitant]
  16. ZANTAC [Concomitant]
     Active Substance: RANITIDINE HYDROCHLORIDE

REACTIONS (5)
  - Atrial fibrillation [Unknown]
  - Abnormal faeces [Unknown]
  - Off label use [Unknown]
  - Cystitis [Unknown]
  - Blood potassium increased [Not Recovered/Not Resolved]

NARRATIVE: CASE EVENT DATE: 201603
